FAERS Safety Report 5357278-X (Version None)
Quarter: 2007Q2

REPORT INFORMATION
  Report Type: 
  Country: None (occurrence: None)
  Receive Date: 20070612
  Receipt Date: 20070612
  Transmission Date: 20071010
  Serious: Yes (Hospitalization)
  Sender: FDA-Public Use
  Company Number: None

PATIENT
  Sex: Female
  Weight: 66 kg

DRUGS (1)
  1. RITUXIMAB [Suspect]
     Indication: B-CELL LYMPHOMA
     Dosage: 630 MG IV
     Route: 042
     Dates: start: 20070518, end: 20070518

REACTIONS (3)
  - ABDOMINAL PAIN UPPER [None]
  - CHILLS [None]
  - INFUSION RELATED REACTION [None]
